FAERS Safety Report 15793855 (Version 1)
Quarter: 2019Q1

REPORT INFORMATION
  Report Type: Spontaneous
  Country: CA (occurrence: CA)
  Receive Date: 20190107
  Receipt Date: 20190107
  Transmission Date: 20190417
  Serious: Yes (Other)
  Sender: FDA-Public Use
  Company Number: CA-PFIZER INC-2018534355

PATIENT
  Age: 8 Month
  Sex: Female

DRUGS (1)
  1. THROMBIN [Suspect]
     Active Substance: THROMBIN
     Indication: HAEMOSTASIS
     Dosage: UNK
     Route: 061

REACTIONS (4)
  - Factor V inhibition [Recovered/Resolved]
  - Prothrombin time prolonged [Unknown]
  - Factor X inhibition [Recovered/Resolved]
  - Activated partial thromboplastin time prolonged [Unknown]
